FAERS Safety Report 8205709-X (Version None)
Quarter: 2012Q1

REPORT INFORMATION
  Report Type: 
  Country: None (occurrence: None)
  Receive Date: 20120313
  Receipt Date: 20120227
  Transmission Date: 20120608
  Serious: No
  Sender: FDA-Public Use
  Company Number: US-ENDO PHARMACEUTICALS INC.-PERC20120040

PATIENT
  Age: 59 Year
  Sex: Male

DRUGS (1)
  1. PERCOCET [Suspect]
     Indication: PAIN
     Dosage: 30/1950 MG
     Route: 048
     Dates: start: 20050101

REACTIONS (1)
  - DRUG EFFECT DECREASED [None]
